FAERS Safety Report 6245267-2 (Version None)
Quarter: 2009Q2

REPORT INFORMATION
  Report Type: 
  Country: None (occurrence: None)
  Receive Date: 20090625
  Receipt Date: 20090602
  Transmission Date: 20091009
  Serious: Yes (Hospitalization)
  Sender: FDA-Public Use
  Company Number: US-MERCK-0906USA00573

PATIENT
  Age: 56 Year
  Sex: Male

DRUGS (8)
  1. EMEND [Suspect]
     Route: 048
  2. EMEND [Suspect]
     Route: 048
  3. IFEX [Suspect]
     Route: 065
  4. VP-16 [Suspect]
     Route: 065
  5. VINCRISTINE SULFATE [Suspect]
     Route: 065
  6. CORTICOSTEROIDS (UNSPECIFIED) [Concomitant]
     Route: 065
  7. ZOFRAN [Concomitant]
     Route: 065
  8. ARA-C [Suspect]
     Route: 065

REACTIONS (5)
  - DRUG INTERACTION [None]
  - ENCEPHALOPATHY [None]
  - NEUROTOXICITY [None]
  - PANCYTOPENIA [None]
  - RENAL FAILURE [None]
